FAERS Safety Report 7249180-3 (Version None)
Quarter: 2011Q1

REPORT INFORMATION
  Report Type: 
  Country: None (occurrence: None)
  Receive Date: 20110128
  Receipt Date: 20110118
  Transmission Date: 20110831
  Serious: Yes (Other)
  Sender: FDA-Public Use
  Company Number: US-JNJFOC-20050501936

PATIENT
  Age: 64 Year
  Sex: Female

DRUGS (4)
  1. ENALAPRIL [Concomitant]
  2. ACETAMINOPHEN/PROPOXYPHEN NAPSYLATE [Concomitant]
  3. INFLIXIMAB [Suspect]
     Indication: RHEUMATOID ARTHRITIS
     Route: 042
  4. PREDNISONE [Concomitant]

REACTIONS (2)
  - SECONDARY AMYLOIDOSIS [None]
  - FOCAL SEGMENTAL GLOMERULOSCLEROSIS [None]
